FAERS Safety Report 8179776-6 (Version None)
Quarter: 2012Q1

REPORT INFORMATION
  Report Type: 
  Country: None (occurrence: None)
  Receive Date: 20120302
  Receipt Date: 20120223
  Transmission Date: 20120608
  Serious: Yes (Death, Hospitalization)
  Sender: FDA-Public Use
  Company Number: JP-B.I. PHARMACEUTICALS,INC./RIDGEFIELD-2012-EU-01198GD

PATIENT
  Age: 90 Year
  Sex: Male

DRUGS (3)
  1. ZOSYN [Concomitant]
     Route: 042
  2. PRADAXA [Suspect]
     Indication: ATRIAL FIBRILLATION
     Dosage: 220 MG
     Route: 048
     Dates: start: 20110531, end: 20110728
  3. LANSOPRAZOLE [Concomitant]
     Route: 048

REACTIONS (1)
  - PNEUMONIA ASPIRATION [None]
